FAERS Safety Report 5900795-1 (Version None)
Quarter: 2008Q3

REPORT INFORMATION
  Report Type: 
  Country: None (occurrence: None)
  Receive Date: 20080929
  Receipt Date: 20080919
  Transmission Date: 20090109
  Serious: Yes (Other)
  Sender: FDA-Public Use
  Company Number: BR-JNJFOC-20080905387

PATIENT
  Age: 26 Year
  Sex: Female
  Weight: 55 kg

DRUGS (1)
  1. GYNO-FUNGIX [Suspect]
     Indication: VAGINAL INFECTION
     Dosage: 1FULL APPLICATOR(5 GRAMS CREAM; 40 MILLIGRAMS TERCONAZOLE)
     Route: 067

REACTIONS (2)
  - DRUG EXPOSURE DURING PREGNANCY [None]
  - VAGINAL HAEMORRHAGE [None]
